FAERS Safety Report 8584620-9 (Version None)
Quarter: 2012Q3

REPORT INFORMATION
  Report Type: 
  Country: None (occurrence: None)
  Receive Date: 20120810
  Receipt Date: 20120731
  Transmission Date: 20120928
  Serious: Yes (Hospitalization)
  Sender: FDA-Public Use
  Company Number: US-BAYER-2010-002090

PATIENT
  Age: 27 Year
  Sex: Female
  Weight: 99.773 kg

DRUGS (6)
  1. MOTRIN [Concomitant]
     Dosage: 800 MG, UNK
  2. GLUCOPHAGE [Concomitant]
     Dosage: 1000 MG, BID
  3. YASMIN [Suspect]
     Indication: POLYCYSTIC OVARIES
     Dosage: UNK
     Route: 048
     Dates: start: 20060101
  4. DARVOCET-N 50 [Concomitant]
     Indication: PAIN
     Dosage: 100, 1-2 Q4 HOURS P.R.N.
  5. YASMIN [Suspect]
     Indication: DYSMENORRHOEA
  6. ATIVAN [Concomitant]
     Route: 042

REACTIONS (3)
  - PULMONARY EMBOLISM [None]
  - THROMBOSIS [None]
  - DEEP VEIN THROMBOSIS [None]
